FAERS Safety Report 6324943-7 (Version None)
Quarter: 2009Q3

REPORT INFORMATION
  Report Type: 
  Country: None (occurrence: None)
  Receive Date: 20090824
  Receipt Date: 20090617
  Transmission Date: 20100115
  Serious: No
  Sender: FDA-Public Use
  Company Number: US-ABBOTT-09P-163-0580399-00

PATIENT
  Sex: Female
  Weight: 61.744 kg

DRUGS (4)
  1. NIASPAN [Suspect]
     Indication: HYPERCHOLESTEROLAEMIA
     Route: 048
     Dates: start: 20090610
  2. NIASPAN [Suspect]
     Dosage: AT BEDTIME
     Route: 048
  3. DIOVAN [Concomitant]
     Indication: DRUG USE FOR UNKNOWN INDICATION
     Dosage: EVERY MORNING
     Route: 048
  4. ASPIRIN [Concomitant]
     Indication: DRUG USE FOR UNKNOWN INDICATION
     Dosage: EVERY MORNING
     Route: 048

REACTIONS (7)
  - DIZZINESS [None]
  - FALL [None]
  - FLUSHING [None]
  - HEADACHE [None]
  - HYPERSOMNIA [None]
  - MUSCLE SPASMS [None]
  - NAUSEA [None]
